FAERS Safety Report 7255094-5 (Version None)
Quarter: 2011Q1

REPORT INFORMATION
  Report Type: 
  Country: None (occurrence: None)
  Receive Date: 20110129
  Receipt Date: 20100330
  Transmission Date: 20110831
  Serious: No
  Sender: FDA-Public Use
  Company Number: US-ABBOTT-10P-163-0630589-00

PATIENT
  Sex: Female
  Weight: 77.18 kg

DRUGS (13)
  1. HUMIRA [Suspect]
     Indication: RHEUMATOID ARTHRITIS
     Dates: start: 20091215
  2. FOLIC ACID [Concomitant]
     Indication: PRODUCT USED FOR UNKNOWN INDICATION
  3. MULTIVITAMIN [Concomitant]
     Indication: PRODUCT USED FOR UNKNOWN INDICATION
  4. AIRBOURNE [Concomitant]
     Indication: PRODUCT USED FOR UNKNOWN INDICATION
  5. METFORMIN HYDROCHLORIDE [Concomitant]
     Indication: DIABETES MELLITUS
  6. AZOPT [Concomitant]
     Indication: PRODUCT USED FOR UNKNOWN INDICATION
  7. UNKNOWN EYE DROP [Concomitant]
     Indication: PRODUCT USED FOR UNKNOWN INDICATION
  8. LANTUS [Suspect]
     Indication: DIABETES MELLITUS
  9. HUMIRA [Suspect]
     Dates: start: 20100301
  10. LUMIGAN [Concomitant]
     Indication: GLAUCOMA
  11. TIMOLOL [Concomitant]
     Indication: GLAUCOMA
  12. IRON [Concomitant]
     Indication: PRODUCT USED FOR UNKNOWN INDICATION
  13. FLAXSEED OIL [Concomitant]
     Indication: PRODUCT USED FOR UNKNOWN INDICATION

REACTIONS (12)
  - SINUSITIS [None]
  - EYE IRRITATION [None]
  - ONYCHOMYCOSIS [None]
  - NAIL DISORDER [None]
  - DYSPNOEA [None]
  - OCULAR HYPERAEMIA [None]
  - ARTHRALGIA [None]
  - TINEA PEDIS [None]
  - BRONCHITIS [None]
  - RASH [None]
  - PAIN IN EXTREMITY [None]
  - DRY EYE [None]
